FAERS Safety Report 4315530-0 (Version None)
Quarter: 2004Q1

REPORT INFORMATION
  Report Type: 
  Country: None (occurrence: None)
  Receive Date: 20040311
  Receipt Date: 20040217
  Transmission Date: 20041129
  Serious: Yes (Hospitalization)
  Sender: FDA-Public Use
  Company Number: WAES 0402CAN00081

PATIENT
  Age: 68 Year
  Sex: Male

DRUGS (6)
  1. ALLOPURINOL [Concomitant]
  2. ASPIRIN [Concomitant]
  3. ATENOLOL [Concomitant]
  4. DANAZOL [Suspect]
     Indication: ANAEMIA HAEMOLYTIC AUTOIMMUNE
  5. FUROSEMIDE [Concomitant]
  6. ZOCOR [Suspect]
     Route: 048

REACTIONS (6)
  - DRUG INTERACTION [None]
  - DRUG INTERACTION INHIBITION [None]
  - DRUG LEVEL INCREASED [None]
  - HAEMODIALYSIS [None]
  - RENAL FAILURE ACUTE [None]
  - RHABDOMYOLYSIS [None]
